FAERS Safety Report 13714360 (Version 1)
Quarter: 2017Q3

REPORT INFORMATION
  Report Type: Spontaneous
  Country: US (occurrence: US)
  Receive Date: 20170704
  Receipt Date: 20170704
  Transmission Date: 20171127
  Serious: No
  Sender: FDA-Public Use
  Company Number: US-TEVA-782616ACC

PATIENT
  Age: 34 Year
  Sex: Female
  Weight: 59.47 kg

DRUGS (1)
  1. PARAGARD T 380A [Suspect]
     Active Substance: COPPER
     Indication: CONTRACEPTION
     Dates: start: 2014, end: 20170518

REACTIONS (2)
  - Therapy cessation [Unknown]
  - Smear cervix abnormal [Unknown]

NARRATIVE: CASE EVENT DATE: 20170417
